FAERS Safety Report 8245964-3 (Version None)
Quarter: 2012Q1

REPORT INFORMATION
  Report Type: 
  Country: None (occurrence: None)
  Receive Date: 20120330
  Receipt Date: 20120326
  Transmission Date: 20120608
  Serious: No
  Sender: FDA-Public Use
  Company Number: US-PFIZER INC-2012078417

PATIENT
  Sex: Male
  Weight: 118 kg

DRUGS (12)
  1. HYDROCHLOROTHIAZIDE [Concomitant]
     Dosage: 25 MG, DAILY
  2. ICY HOT [Suspect]
     Indication: PAIN
  3. LOVASTATIN [Concomitant]
     Indication: BLOOD CHOLESTEROL ABNORMAL
     Dosage: 40 MG, DAILY
  4. ICY HOT [Suspect]
     Indication: HEADACHE
     Dosage: UNK
  5. TOPICAL PRODUCTS FOR JOINT AND MUSCULAR PAIN [Suspect]
     Indication: PAIN
  6. GLIPIZIDE [Concomitant]
     Indication: DIABETES MELLITUS
     Dosage: 10 MG, DAILY
  7. EXCEDRIN (MIGRAINE) [Suspect]
     Indication: HEADACHE
     Dosage: UNK
  8. LYRICA [Suspect]
     Indication: PAIN
     Dosage: UNK
     Route: 048
     Dates: start: 19990101
  9. EXCEDRIN (MIGRAINE) [Suspect]
     Indication: PAIN
  10. BENAZEPRIL [Concomitant]
     Indication: HYPERTENSION
     Dosage: 20 MG, DAILY
  11. TOPICAL PRODUCTS FOR JOINT AND MUSCULAR PAIN [Suspect]
     Indication: HEADACHE
     Dosage: UNK
  12. METFORMIN [Concomitant]
     Indication: DIABETES MELLITUS
     Dosage: 1000 MG, 2X/DAY

REACTIONS (3)
  - HEADACHE [None]
  - DRUG INEFFECTIVE [None]
  - PAIN [None]
